FAERS Safety Report 18404270 (Version 1)
Quarter: 2020Q4

REPORT INFORMATION
  Report Type: Spontaneous
  Country: US (occurrence: US)
  Receive Date: 20201020
  Receipt Date: 20201020
  Transmission Date: 20210114
  Serious: No
  Sender: FDA-Public Use
  Company Number: US-AMGEN-USASP2020165163

PATIENT
  Sex: Female

DRUGS (14)
  1. PROMETHAZINE [Concomitant]
     Active Substance: PROMETHAZINE HYDROCHLORIDE
     Dosage: 25 MILLIGRAM
  2. LASIX [Concomitant]
     Active Substance: FUROSEMIDE
  3. CYCLOBENZAPRIN [Concomitant]
     Active Substance: CYCLOBENZAPRINE
     Dosage: 10 MILLIGRAM
  4. AMOXICILLIN. [Concomitant]
     Active Substance: AMOXICILLIN
     Dosage: 250 MILLIGRAM
  5. ZETIA [Concomitant]
     Active Substance: EZETIMIBE
     Dosage: 10 MILLIGRAM
  6. AMLODIPINE BESILATE [Concomitant]
     Active Substance: AMLODIPINE BESYLATE
     Dosage: 5-20 MILLIGRAMS
  7. CRESTOR [Concomitant]
     Active Substance: ROSUVASTATIN CALCIUM
     Dosage: 40 MILLIGRAM
  8. DOXEPIN HCL [Concomitant]
     Active Substance: DOXEPIN HYDROCHLORIDE
     Dosage: 10 MILLIGRAM
  9. AZITHROMYCIN ANHYDROUS. [Concomitant]
     Active Substance: AZITHROMYCIN ANHYDROUS
  10. PREDNISONE. [Concomitant]
     Active Substance: PREDNISONE
  11. WARFARIN [Concomitant]
     Active Substance: WARFARIN
     Dosage: 5 MILLIGRAM
  12. REPATHA [Suspect]
     Active Substance: EVOLOCUMAB
     Indication: ESSENTIAL HYPERTENSION
     Dosage: 140 MILLIGRAM, Q2WK
     Route: 058
  13. DOXYCYCLINE HYDROCHLORIDE [Concomitant]
     Active Substance: DOXYCYCLINE HYDROCHLORIDE
     Dosage: 100 MILLIGRAM
  14. ESOMEPRA [Concomitant]
     Active Substance: ESOMEPRAZOLE
     Dosage: 50000 UNIT

REACTIONS (3)
  - Upper respiratory tract infection [Unknown]
  - Off label use [Unknown]
  - Ear disorder [Unknown]
